FAERS Safety Report 5207933-7 (Version None)
Quarter: 2007Q1

REPORT INFORMATION
  Report Type: 
  Country: None (occurrence: None)
  Receive Date: 20070115
  Receipt Date: 20070109
  Transmission Date: 20070707
  Serious: Yes (Hospitalization, Other)
  Sender: FDA-Public Use
  Company Number: PHBS2006JP17706

PATIENT
  Age: 75 Year
  Sex: Female

DRUGS (3)
  1. DIOVAN [Suspect]
     Indication: HYPERTENSION
     Dosage: 80 MG/DAY
     Route: 048
     Dates: start: 20050801, end: 20061101
  2. ALPRAZOLAM [Concomitant]
     Dosage: 0.4 MG/DAY
     Route: 048
     Dates: start: 20050801, end: 20061101
  3. LIVALO [Suspect]
     Indication: HYPERCHOLESTEROLAEMIA
     Dosage: 1 MG/DAY
     Route: 048
     Dates: start: 20050801, end: 20061101

REACTIONS (11)
  - BLOOD ALKALINE PHOSPHATASE INCREASED [None]
  - C-REACTIVE PROTEIN INCREASED [None]
  - GAMMA-GLUTAMYLTRANSFERASE INCREASED [None]
  - OEDEMA [None]
  - PLATELET COUNT DECREASED [None]
  - PLEURAL EFFUSION [None]
  - PROTEIN URINE PRESENT [None]
  - RASH [None]
  - RENAL IMPAIRMENT [None]
  - SERUM AMYLOID A PROTEIN INCREASED [None]
  - THROMBOCYTOPENIA [None]
